FAERS Safety Report 14549692 (Version 6)
Quarter: 2018Q2

REPORT INFORMATION
  Report Type: Spontaneous
  Country: US (occurrence: US)
  Receive Date: 20180219
  Receipt Date: 20180629
  Transmission Date: 20180711
  Serious: Yes (Hospitalization, Other)
  Sender: FDA-Public Use
  Company Number: US-SUNOVION-2018SUN000546

PATIENT
  Age: 63 Year
  Sex: Female
  Weight: 60.32 kg

DRUGS (7)
  1. APTIOM [Suspect]
     Active Substance: ESLICARBAZEPINE ACETATE
     Indication: SEIZURE
     Dosage: 800 MG, QD
     Route: 048
     Dates: start: 201612, end: 201801
  2. APTIOM [Interacting]
     Active Substance: ESLICARBAZEPINE ACETATE
     Dosage: 600 MG, QD
     Route: 048
     Dates: start: 201801
  3. PHENOBARBITAL. [Interacting]
     Active Substance: PHENOBARBITAL
     Dosage: 32.4 MG, QD (16.2MG TWO TABS QHS/PO)
     Route: 048
  4. PHENOBARBITAL. [Interacting]
     Active Substance: PHENOBARBITAL
     Indication: SEIZURE
     Dosage: 48.6 MG, UNK (16.2 MG IN THE MORNING AND 32.4 MG AT NIGHT)
  5. BRIVIACT [Suspect]
     Active Substance: BRIVARACETAM
     Dosage: UNK, BID
     Route: 048
     Dates: start: 201612
  6. COUMADIN [Interacting]
     Active Substance: WARFARIN SODIUM
     Indication: HEART VALVE REPLACEMENT
     Dosage: 4 MG, QD (EXCEPT FRIDAY)
     Route: 048
  7. COUMADIN [Interacting]
     Active Substance: WARFARIN SODIUM
     Dosage: 6 MG, QD (EVERY FRIDAY)

REACTIONS (21)
  - Oropharyngeal pain [Recovered/Resolved]
  - Upper respiratory tract infection [Recovered/Resolved]
  - Weight fluctuation [Recovered/Resolved]
  - Pollakiuria [Not Recovered/Not Resolved]
  - Dehydration [Recovered/Resolved]
  - Haemoptysis [Recovered/Resolved]
  - Constipation [Recovered/Resolved]
  - Drug interaction [Recovered/Resolved]
  - Perennial allergy [Not Recovered/Not Resolved]
  - Dental caries [Not Recovered/Not Resolved]
  - Drug ineffective [Recovered/Resolved]
  - Weight increased [Recovered/Resolved]
  - Urinary incontinence [Recovered/Resolved]
  - International normalised ratio abnormal [Recovered/Resolved]
  - Lymphadenopathy [Recovered/Resolved]
  - Diarrhoea [Not Recovered/Not Resolved]
  - Seizure [Recovered/Resolved]
  - Malaise [Recovered/Resolved]
  - Bronchospasm [Recovered/Resolved]
  - Contusion [Recovered/Resolved]
  - Dehydration [Not Recovered/Not Resolved]

NARRATIVE: CASE EVENT DATE: 201712
